FAERS Safety Report 23509938 (Version 1)
Quarter: 2024Q1

REPORT INFORMATION
  Report Type: Spontaneous
  Country: CZ (occurrence: CZ)
  Receive Date: 20240211
  Receipt Date: 20240211
  Transmission Date: 20240410
  Serious: Yes (Death, Life-Threatening, Hospitalization, Other)
  Sender: FDA-Public Use
  Company Number: None

PATIENT
  Age: 76 Year
  Sex: Female

DRUGS (4)
  1. CARBOPLATIN [Suspect]
     Active Substance: CARBOPLATIN
     Indication: Adenocarcinoma
     Dosage: UNK
     Route: 065
     Dates: start: 202112
  2. IPILIMUMAB [Suspect]
     Active Substance: IPILIMUMAB
     Indication: Adenocarcinoma
     Dosage: UNK
     Route: 065
     Dates: start: 202112
  3. NIVOLUMAB [Suspect]
     Active Substance: NIVOLUMAB
     Indication: Adenocarcinoma
     Dosage: DOSE : NIVO 360 MG AND IPI 68 MG;     FREQ : UNAVUNK
     Route: 065
     Dates: start: 202112
  4. PEMETREXED [Suspect]
     Active Substance: PEMETREXED
     Indication: Adenocarcinoma
     Dosage: UNK
     Route: 065
     Dates: start: 202112

REACTIONS (19)
  - General physical health deterioration [Fatal]
  - Hypokalaemia [Unknown]
  - Sepsis [Unknown]
  - Febrile neutropenia [Unknown]
  - Pancytopenia [Unknown]
  - Malignant neoplasm progression [Unknown]
  - Pneumonia [Unknown]
  - Herpes virus infection [Unknown]
  - Hypophosphataemia [Unknown]
  - Pyrexia [Unknown]
  - Urinary tract infection [Unknown]
  - Blood thyroid stimulating hormone decreased [Unknown]
  - Thyroxine free decreased [Unknown]
  - Diarrhoea [Unknown]
  - Hypophysitis [Unknown]
  - Retching [Unknown]
  - Decreased appetite [Unknown]
  - Hypomagnesaemia [Unknown]
  - Vomiting [Unknown]

NARRATIVE: CASE EVENT DATE: 20211201
